FAERS Safety Report 10485561 (Version 1)
Quarter: 2014Q3

REPORT INFORMATION
  Report Type: Spontaneous
  Country: FR (occurrence: FR)
  Receive Date: 20140930
  Receipt Date: 20140930
  Transmission Date: 20150326
  Serious: Yes (Hospitalization, Other)
  Sender: FDA-Public Use
  Company Number: FR-BRISTOL-MYERS SQUIBB COMPANY-21438601

PATIENT
  Age: 91 Year
  Sex: Female

DRUGS (1)
  1. COUMADINE [Suspect]
     Active Substance: WARFARIN SODIUM
     Indication: ATRIAL FIBRILLATION
     Dates: end: 20140507

REACTIONS (4)
  - Microcytic anaemia [Recovered/Resolved]
  - Weight decreased [Unknown]
  - Cardiac failure [Recovered/Resolved]
  - Adenocarcinoma gastric [Unknown]

NARRATIVE: CASE EVENT DATE: 20140507
